FAERS Safety Report 9490586 (Version 2)
Quarter: 2014Q1

REPORT INFORMATION
  Report Type: Spontaneous
  Country: ES (occurrence: ES)
  Receive Date: 20130830
  Receipt Date: 20140225
  Transmission Date: 20141002
  Serious: Yes (Death, Hospitalization, Other)
  Sender: FDA-Public Use
  Company Number: ES-CELGENEUS-144-POMAL-13083594

PATIENT
  Age: 62 Year
  Sex: Male

DRUGS (11)
  1. POMALYST [Suspect]
     Indication: PLASMA CELL MYELOMA
     Dosage: 4 MILLIGRAM
     Route: 048
     Dates: start: 20130729, end: 20130818
  2. ARANESP [Concomitant]
     Indication: ANAEMIA
     Route: 058
     Dates: start: 20130801
  3. ENALAPRIL [Concomitant]
     Indication: CARDIAC FAILURE
     Dosage: 20 MILLIGRAM
     Route: 048
     Dates: start: 20130713
  4. AMLODIPINE [Concomitant]
     Indication: RENAL FAILURE CHRONIC
     Dosage: 10 MILLIGRAM
     Route: 048
     Dates: start: 20130713
  5. AMLODIPINE [Concomitant]
     Dosage: 20 MILLIGRAM
     Route: 048
  6. DEXAMETHASONE [Concomitant]
     Indication: PLASMA CELL MYELOMA
     Route: 065
  7. DEXAMETHASONE [Concomitant]
     Route: 065
  8. DEXAMETHASONE [Concomitant]
     Route: 065
     Dates: start: 201307, end: 20130819
  9. PANTOPRAZOLE [Concomitant]
     Indication: ANAEMIA
     Dosage: 40 MICROGRAM
     Route: 058
  10. LORAZEPAM [Concomitant]
     Indication: ANAEMIA
     Dosage: 1 MILLIGRAM
     Route: 058
  11. DISTRANEURINE [Concomitant]
     Indication: ANAEMIA
     Route: 065

REACTIONS (8)
  - Septic shock [Fatal]
  - Cardiac failure [Fatal]
  - Coagulopathy [Fatal]
  - Renal failure acute [Fatal]
  - Febrile neutropenia [Not Recovered/Not Resolved]
  - Plasma cell myeloma [Unknown]
  - Diarrhoea [Unknown]
  - Vomiting [Unknown]
